FAERS Safety Report 21580830 (Version 1)
Quarter: 2022Q4

REPORT INFORMATION
  Report Type: Spontaneous
  Country: US (occurrence: US)
  Receive Date: 20221111
  Receipt Date: 20221111
  Transmission Date: 20230113
  Serious: No
  Sender: FDA-Public Use
  Company Number: US-JNJFOC-20221047705

PATIENT
  Age: 19 Year
  Sex: Female
  Weight: 62.652 kg

DRUGS (3)
  1. SIMPONI [Suspect]
     Active Substance: GOLIMUMAB
     Indication: Rheumatoid arthritis
     Route: 058
     Dates: start: 20220831
  2. SIMPONI [Suspect]
     Active Substance: GOLIMUMAB
     Route: 041
  3. ENTIVIO [Concomitant]
     Indication: Product used for unknown indication

REACTIONS (3)
  - Eczema [Unknown]
  - Product label issue [Unknown]
  - Pustule [Unknown]

NARRATIVE: CASE EVENT DATE: 20220904
